FAERS Safety Report 12765908 (Version 1)
Quarter: 2016Q3

REPORT INFORMATION
  Report Type: Spontaneous
  Country: US (occurrence: US)
  Receive Date: 20160920
  Receipt Date: 20160920
  Transmission Date: 20161109
  Serious: Yes (Other)
  Sender: FDA-Public Use
  Company Number: None

PATIENT
  Age: 18 Year
  Sex: Female
  Weight: 58.5 kg

DRUGS (1)
  1. HYOSCYAMINE 0,125 MG DL [Suspect]
     Active Substance: HYOSCYAMINE
     Indication: IRRITABLE BOWEL SYNDROME

REACTIONS (6)
  - Balance disorder [None]
  - Dysarthria [None]
  - Dizziness [None]
  - Hallucination [None]
  - Vision blurred [None]
  - Disorientation [None]

NARRATIVE: CASE EVENT DATE: 20160509
